FAERS Safety Report 8261631-4 (Version None)
Quarter: 2012Q2

REPORT INFORMATION
  Report Type: 
  Country: None (occurrence: None)
  Receive Date: 20120405
  Receipt Date: 20120326
  Transmission Date: 20120825
  Serious: No
  Sender: FDA-Public Use
  Company Number: US-B.I. PHARMACEUTICALS,INC./RIDGEFIELD-2012-BP-05678BP

PATIENT
  Sex: Female

DRUGS (9)
  1. PRADAXA [Suspect]
     Indication: ATRIAL FIBRILLATION
     Dosage: 150 MG
     Route: 048
     Dates: start: 20110201
  2. ALLOPURINOL [Concomitant]
     Indication: GOUT
     Dosage: 100 MG
     Route: 048
     Dates: start: 20070101
  3. CALCIUM ACETATE [Concomitant]
     Indication: RENAL DISORDER
     Dosage: 667 MG
     Route: 048
  4. CALCITRIOL [Concomitant]
     Indication: SUPPLEMENTATION THERAPY
     Dosage: 0.25 MCG
     Route: 048
  5. FERROUS SULFATE TAB [Concomitant]
     Indication: ANAEMIA
     Route: 048
     Dates: start: 20100101
  6. FUROSEMIDE [Concomitant]
     Indication: FLUID RETENTION
     Dosage: 40 MG
     Route: 048
     Dates: start: 20070101
  7. VITAMIN D [Concomitant]
     Indication: SUPPLEMENTATION THERAPY
     Route: 048
  8. FISH OIL [Concomitant]
     Indication: PROPHYLAXIS
     Dosage: 1000 MG
     Route: 048
  9. PROAIR HFA [Concomitant]
     Indication: CHRONIC OBSTRUCTIVE PULMONARY DISEASE
     Route: 055
     Dates: start: 20080101

REACTIONS (9)
  - HAEMATOCHEZIA [None]
  - FEELING ABNORMAL [None]
  - CHEST DISCOMFORT [None]
  - CONTUSION [None]
  - MOUTH HAEMORRHAGE [None]
  - PRURITUS [None]
  - MUSCLE SPASMS [None]
  - PAIN IN EXTREMITY [None]
  - EPISTAXIS [None]
